FAERS Safety Report 7610384-9 (Version None)
Quarter: 2011Q3

REPORT INFORMATION
  Report Type: 
  Country: None (occurrence: None)
  Receive Date: 20110715
  Receipt Date: 20110712
  Transmission Date: 20111222
  Serious: No
  Sender: FDA-Public Use
  Company Number: US-PFIZER INC-2011121330

PATIENT
  Sex: Male

DRUGS (2)
  1. LYRICA [Suspect]
     Indication: HERPES ZOSTER
     Dosage: 75 MG, 1X/DAY
     Route: 048
     Dates: start: 20110601
  2. ALMOTRIPTAN [Concomitant]
     Dosage: UNK

REACTIONS (1)
  - ABDOMINAL PAIN UPPER [None]
